FAERS Safety Report 25578377 (Version 1)
Quarter: 2025Q3

REPORT INFORMATION
  Report Type: Spontaneous
  Country: CN (occurrence: CN)
  Receive Date: 20250718
  Receipt Date: 20250718
  Transmission Date: 20251021
  Serious: Yes (Other)
  Sender: SANOFI AVENTIS
  Company Number: CN-SA-2025SA205422

PATIENT
  Age: 51 Year
  Sex: Female
  Weight: 66 kg

DRUGS (12)
  1. OXALIPLATIN [Suspect]
     Active Substance: OXALIPLATIN
     Indication: Rectal cancer
     Dosage: 200 MG, Q3W D1
     Route: 041
     Dates: start: 20250226, end: 20250226
  2. OXALIPLATIN [Suspect]
     Active Substance: OXALIPLATIN
     Dosage: 200 MG, Q3W D1
     Route: 041
     Dates: start: 20250416, end: 20250416
  3. OXALIPLATIN [Suspect]
     Active Substance: OXALIPLATIN
     Dosage: 200 MG, Q3W D1
     Route: 041
     Dates: start: 20250507, end: 20250507
  4. OXALIPLATIN [Suspect]
     Active Substance: OXALIPLATIN
     Dosage: 200 MG, Q3W D1
     Route: 041
     Dates: start: 20250618, end: 20250618
  5. DEXTROSE [Concomitant]
     Active Substance: DEXTROSE MONOHYDRATE
     Indication: Rectal cancer
     Dosage: 500 ML, Q3W D1
     Route: 041
     Dates: start: 20250226, end: 20250226
  6. DEXTROSE [Concomitant]
     Active Substance: DEXTROSE MONOHYDRATE
     Dosage: 500 ML, Q3W D1
     Route: 041
     Dates: start: 20250416, end: 20250416
  7. DEXTROSE [Concomitant]
     Active Substance: DEXTROSE MONOHYDRATE
     Dosage: 500 ML, Q3W D1
     Route: 041
     Dates: start: 20250507, end: 20250507
  8. DEXTROSE [Concomitant]
     Active Substance: DEXTROSE MONOHYDRATE
     Dosage: 500 ML, Q3W D1
     Route: 041
     Dates: start: 20250618, end: 20250618
  9. CAPECITABINE [Concomitant]
     Active Substance: CAPECITABINE
     Indication: Rectal cancer
     Dosage: 1.5 H PO BID D1-D14 Q3W
     Dates: start: 20250226, end: 20250226
  10. CAPECITABINE [Concomitant]
     Active Substance: CAPECITABINE
     Dosage: 1.5 H PO BID D1-D14 Q3W
     Dates: start: 20250416, end: 20250416
  11. CAPECITABINE [Concomitant]
     Active Substance: CAPECITABINE
     Dosage: 1.5 H PO BID D1-D14 Q3W
     Dates: start: 20250507, end: 20250507
  12. CAPECITABINE [Concomitant]
     Active Substance: CAPECITABINE
     Dosage: 1.5 H PO BID D1-D14 Q3W
     Dates: start: 20250618, end: 20250618

REACTIONS (5)
  - Palmar-plantar erythrodysaesthesia syndrome [Not Recovered/Not Resolved]
  - Neurotoxicity [Not Recovered/Not Resolved]
  - Hypoaesthesia [Not Recovered/Not Resolved]
  - Pain in extremity [Not Recovered/Not Resolved]
  - Skin discolouration [Not Recovered/Not Resolved]

NARRATIVE: CASE EVENT DATE: 20250707
